FAERS Safety Report 10273370 (Version 1)
Quarter: 2014Q2

REPORT INFORMATION
  Report Type: Spontaneous
  Country: US (occurrence: None)
  Receive Date: 20140630
  Receipt Date: 20140630
  Transmission Date: 20141212
  Serious: Yes (Life-Threatening, Other)
  Sender: FDA-Public Use
  Company Number: None

PATIENT
  Age: 24 Year
  Sex: Male

DRUGS (7)
  1. GABAPENTIN 300 MG [Suspect]
     Indication: PAIN
     Dosage: 300 MG CAP. ?INCREAE BY 300 WEEKLY, THEN 900 MG A DAY FOLLOWING ?TITRATION SHEET PROVIDED/MOUTH
     Route: 048
     Dates: start: 20140412, end: 20140501
  2. GABAPENTIN 300 MG [Suspect]
     Indication: COLITIS ULCERATIVE
     Dosage: 300 MG CAP. ?INCREAE BY 300 WEEKLY, THEN 900 MG A DAY FOLLOWING ?TITRATION SHEET PROVIDED/MOUTH
     Route: 048
     Dates: start: 20140412, end: 20140501
  3. DELZICOL [Concomitant]
  4. NEXIUM [Concomitant]
  5. TRAMADOL [Concomitant]
  6. ZOLPIDEM [Concomitant]
  7. CELEXA [Concomitant]

REACTIONS (2)
  - Depression [None]
  - Nausea [None]
